FAERS Safety Report 19433029 (Version 1)
Quarter: 2021Q2

REPORT INFORMATION
  Report Type: Spontaneous
  Country: US (occurrence: US)
  Receive Date: 20210618
  Receipt Date: 20210618
  Transmission Date: 20210717
  Serious: Yes (Other)
  Sender: FDA-Public Use
  Company Number: US-LUPIN PHARMACEUTICALS INC.-2021-09606

PATIENT
  Age: 17 Year
  Sex: Male

DRUGS (6)
  1. CLOBAZAM. [Suspect]
     Active Substance: CLOBAZAM
     Indication: FOCAL DYSCOGNITIVE SEIZURES
     Dosage: UNK
     Route: 065
  2. CARBAMAZEPINE. [Suspect]
     Active Substance: CARBAMAZEPINE
     Indication: FOCAL DYSCOGNITIVE SEIZURES
     Dosage: UNK
     Route: 065
  3. LACOSAMIDE. [Suspect]
     Active Substance: LACOSAMIDE
     Indication: FOCAL DYSCOGNITIVE SEIZURES
     Dosage: UNK
     Route: 065
  4. LEVETIRACETAM. [Suspect]
     Active Substance: LEVETIRACETAM
     Indication: FOCAL DYSCOGNITIVE SEIZURES
     Dosage: UNK
     Route: 065
  5. VALPROIC ACID. [Suspect]
     Active Substance: VALPROIC ACID
     Indication: FOCAL DYSCOGNITIVE SEIZURES
     Dosage: UNK
     Route: 065
  6. OXCARBAZEPINE. [Suspect]
     Active Substance: OXCARBAZEPINE
     Indication: FOCAL DYSCOGNITIVE SEIZURES
     Dosage: UNK
     Route: 065

REACTIONS (1)
  - Drug ineffective [Unknown]
